FAERS Safety Report 8291771-5 (Version None)
Quarter: 2012Q2

REPORT INFORMATION
  Report Type: 
  Country: None (occurrence: None)
  Receive Date: 20120417
  Receipt Date: 20110321
  Transmission Date: 20120825
  Serious: No
  Sender: FDA-Public Use
  Company Number: US-ASTRAZENECA-2011SE15709

PATIENT
  Age: 42 Year
  Sex: Female

DRUGS (3)
  1. NEXIUM [Suspect]
     Indication: GASTROOESOPHAGEAL REFLUX DISEASE
     Route: 048
     Dates: start: 20090101
  2. NEXIUM [Suspect]
     Route: 048
  3. SINGULAIR [Concomitant]

REACTIONS (9)
  - DYSPEPSIA [None]
  - VOMITING [None]
  - HYPERCHLORHYDRIA [None]
  - DIZZINESS [None]
  - MALAISE [None]
  - INAPPROPRIATE SCHEDULE OF DRUG ADMINISTRATION [None]
  - DRUG DOSE OMISSION [None]
  - GASTRIC DISORDER [None]
  - NAUSEA [None]
